FAERS Safety Report 11849306 (Version 1)
Quarter: 2015Q4

REPORT INFORMATION
  Report Type: Spontaneous
  Country: US (occurrence: US)
  Receive Date: 20151218
  Receipt Date: 20151218
  Transmission Date: 20160305
  Serious: No
  Sender: FDA-Public Use
  Company Number: US-FERRINGPH-2014FE03307

PATIENT
  Age: 40 Year
  Sex: Female

DRUGS (1)
  1. REPRONEX [Suspect]
     Active Substance: FOLLITROPIN\LUTEINIZING HORMONE\MENOTROPINS
     Indication: INFERTILITY
     Dosage: UNK,FORMULATION:INJECTION
     Route: 058
     Dates: start: 20140820

REACTIONS (2)
  - Burning sensation [None]
  - Injection site pain [Not Recovered/Not Resolved]

NARRATIVE: CASE EVENT DATE: 20140820
